FAERS Safety Report 17864776 (Version 1)
Quarter: 2020Q2

REPORT INFORMATION
  Report Type: Other
  Country: DE (occurrence: DE)
  Receive Date: 20200605
  Receipt Date: 20200605
  Transmission Date: 20200714
  Serious: Yes (Life-Threatening, Hospitalization, Other)
  Sender: FDA-Public Use
  Company Number: DE-APPCO PHARMA LLC-2085479

PATIENT
  Age: 55 Year
  Sex: Male

DRUGS (1)
  1. SILDENAFIL TABLETS USP, 25 MG, 50 MG, AND 100 MG [Suspect]
     Active Substance: SILDENAFIL
     Indication: ERECTILE DYSFUNCTION
     Route: 065

REACTIONS (4)
  - Incorrect dose administered [Unknown]
  - Self-medication [Unknown]
  - Thunderclap headache [Recovered/Resolved]
  - Subarachnoid haemorrhage [Recovered/Resolved]
